FAERS Safety Report 16899920 (Version 2)
Quarter: 2019Q4

REPORT INFORMATION
  Report Type: Spontaneous
  Country: US (occurrence: US)
  Receive Date: 20191009
  Receipt Date: 20191122
  Transmission Date: 20200122
  Serious: No
  Sender: FDA-Public Use
  Company Number: US-BAUSCH-BL-2019-025448

PATIENT
  Age: 59 Year
  Sex: Female

DRUGS (6)
  1. OMEPRAZOLE. [Concomitant]
     Active Substance: OMEPRAZOLE
     Indication: PRODUCT USED FOR UNKNOWN INDICATION
  2. TRULANCE [Suspect]
     Active Substance: PLECANATIDE
     Dosage: CONTINUED THE PRESCRIPTION BOTTLE
     Route: 048
     Dates: start: 2019
  3. TRULANCE [Suspect]
     Active Substance: PLECANATIDE
     Dosage: SAMPLES RECEIVED FROM HER PHYSICIAN
     Route: 048
     Dates: start: 2019, end: 2019
  4. MIRALAX [Concomitant]
     Active Substance: POLYETHYLENE GLYCOL 3350
     Indication: PRODUCT USED FOR UNKNOWN INDICATION
  5. TRULANCE [Suspect]
     Active Substance: PLECANATIDE
     Indication: IRRITABLE BOWEL SYNDROME
     Route: 048
     Dates: start: 2018, end: 20190814
  6. TRULANCE [Suspect]
     Active Substance: PLECANATIDE
     Dosage: PRESCRIPTION (NEW) BOTTLE
     Route: 048
     Dates: start: 20190814, end: 2019

REACTIONS (2)
  - Product quality issue [Unknown]
  - Drug ineffective [Unknown]

NARRATIVE: CASE EVENT DATE: 201908
